FAERS Safety Report 24652794 (Version 4)
Quarter: 2025Q1

REPORT INFORMATION
  Report Type: Spontaneous
  Country: ES (occurrence: ES)
  Receive Date: 20241122
  Receipt Date: 20250110
  Transmission Date: 20250408
  Serious: Yes (Hospitalization, Other)
  Sender: AURINIA PHARMACEUTICALS
  Company Number: ES-OTSUKA-2024_026777

PATIENT

DRUGS (3)
  1. LUPKYNIS [Suspect]
     Active Substance: VOCLOSPORIN
     Indication: Proteinuria
     Dosage: 23.7 MILLIGRAM, BID
     Route: 048
     Dates: start: 202404, end: 202408
  2. METHOTREXATE [Concomitant]
     Active Substance: METHOTREXATE
     Indication: Product used for unknown indication
     Dates: start: 2022
  3. MYCOPHENOLIC ACID [Concomitant]
     Active Substance: MYCOPHENOLIC ACID
     Indication: Glomerulonephritis
     Dates: start: 202305

REACTIONS (11)
  - Toxic skin eruption [Unknown]
  - Gamma-glutamyltransferase increased [Unknown]
  - Punctate keratitis [Unknown]
  - Urine odour abnormal [Unknown]
  - Pruritus genital [Unknown]
  - Protein urine present [Unknown]
  - White blood cells urine positive [Unknown]
  - Arthralgia [Unknown]
  - Off label use [Unknown]
  - Therapy cessation [Unknown]
  - Economic problem [Unknown]

NARRATIVE: CASE EVENT DATE: 20240101
